FAERS Safety Report 13773178 (Version 1)
Quarter: 2017Q3

REPORT INFORMATION
  Report Type: Spontaneous
  Country: US (occurrence: US)
  Receive Date: 20170720
  Receipt Date: 20170720
  Transmission Date: 20171127
  Serious: No
  Sender: FDA-Public Use
  Company Number: US-009507513-1707USA005094

PATIENT
  Age: 18 Year
  Sex: Female
  Weight: 68.03 kg

DRUGS (1)
  1. NEXPLANON [Suspect]
     Active Substance: ETONOGESTREL
     Indication: CONTRACEPTION
     Dosage: 1 DF FOR 3 YEARS
     Route: 059

REACTIONS (4)
  - Influenza like illness [Unknown]
  - Pyrexia [Unknown]
  - Oropharyngeal pain [Unknown]
  - Nausea [Unknown]
